FAERS Safety Report 13260916 (Version 2)
Quarter: 2017Q2

REPORT INFORMATION
  Report Type: Spontaneous
  Country: FR (occurrence: FR)
  Receive Date: 20170222
  Receipt Date: 20170410
  Transmission Date: 20170830
  Serious: Yes (Life-Threatening, Hospitalization, Disabling, Other)
  Sender: FDA-Public Use
  Company Number: FR-ABBVIE-17P-056-1880332-00

PATIENT
  Age: 62 Year
  Sex: Female
  Weight: 46 kg

DRUGS (2)
  1. HUMIRA [Suspect]
     Active Substance: ADALIMUMAB
     Indication: RHEUMATOID ARTHRITIS
     Route: 058
     Dates: start: 201411, end: 20170131
  2. SALAZOPYRINE [Suspect]
     Active Substance: SULFASALAZINE
     Indication: RHEUMATOID ARTHRITIS
     Route: 048
     Dates: start: 20170117, end: 20170205

REACTIONS (4)
  - Meningitis aseptic [Recovered/Resolved]
  - Blindness [Unknown]
  - Posterior reversible encephalopathy syndrome [Recovered/Resolved]
  - Panencephalitis [Unknown]

NARRATIVE: CASE EVENT DATE: 20170130
